FAERS Safety Report 8615320-4 (Version None)
Quarter: 2012Q3

REPORT INFORMATION
  Report Type: 
  Country: None (occurrence: None)
  Receive Date: 20120823
  Receipt Date: 20120814
  Transmission Date: 20120928
  Serious: Yes (Hospitalization, Other)
  Sender: FDA-Public Use
  Company Number: US-ELI_LILLY_AND_COMPANY-US201208004226

PATIENT
  Sex: Female

DRUGS (3)
  1. STRATTERA [Suspect]
     Indication: DEPRESSION
     Dosage: 50 MG, QD
  2. CLARAVIS [Concomitant]
     Indication: ACNE
     Dosage: 40 MG, UNKNOWN
     Dates: start: 20111201, end: 20120510
  3. ZOLOFT [Concomitant]
     Indication: DEPRESSION
     Dosage: 50 MG, QD

REACTIONS (4)
  - DEPRESSION [None]
  - SUICIDE ATTEMPT [None]
  - BACK PAIN [None]
  - EPISTAXIS [None]
